FAERS Safety Report 17092956 (Version 3)
Quarter: 2020Q2

REPORT INFORMATION
  Report Type: Report from Study
  Country: US (occurrence: US)
  Receive Date: 20191129
  Receipt Date: 20200615
  Transmission Date: 20200713
  Serious: No
  Sender: FDA-Public Use
  Company Number: NVSC2019US045905

PATIENT
  Sex: Female
  Weight: 63.5 kg

DRUGS (5)
  1. IRON [Concomitant]
     Active Substance: IRON
     Indication: ANAEMIA
     Dosage: 65 MG
     Route: 048
     Dates: start: 2017
  2. GILENYA [Suspect]
     Active Substance: FINGOLIMOD HYDROCHLORIDE
     Indication: MULTIPLE SCLEROSIS
     Dosage: 0.5 MG, QD
     Route: 048
     Dates: start: 201702, end: 20191019
  3. PRENATAL VITAMINS [Concomitant]
     Active Substance: VITAMINS
     Indication: PREGNANCY
     Dosage: UNK
     Route: 048
     Dates: start: 201911
  4. VIT D [Concomitant]
     Active Substance: VITAMIN D NOS
     Indication: MULTIPLE SCLEROSIS
     Dosage: 10000 IU
     Route: 048
     Dates: start: 2017
  5. ADDERALL [Concomitant]
     Active Substance: AMPHETAMINE ASPARTATE\AMPHETAMINE SULFATE\DEXTROAMPHETAMINE SACCHARATE\DEXTROAMPHETAMINE SULFATE
     Indication: ATTENTION DEFICIT HYPERACTIVITY DISORDER
     Dosage: 30 MG, BID (2X A DAY)
     Route: 048
     Dates: start: 2014

REACTIONS (2)
  - Maternal exposure during pregnancy [Unknown]
  - Normal newborn [Unknown]
